FAERS Safety Report 16478362 (Version 1)
Quarter: 2019Q2

REPORT INFORMATION
  Report Type: Spontaneous
  Country: FR (occurrence: FR)
  Receive Date: 20190626
  Receipt Date: 20190626
  Transmission Date: 20190711
  Serious: Yes (Hospitalization)
  Sender: FDA-Public Use
  Company Number: FR-PFIZER INC-2019268436

PATIENT
  Age: 56 Year
  Sex: Female
  Weight: 80 kg

DRUGS (6)
  1. UVEDOSE [Concomitant]
     Active Substance: CHOLECALCIFEROL
     Dosage: UNK
  2. IMUREL [AZATHIOPRINE] [Suspect]
     Active Substance: AZATHIOPRINE
     Indication: ENTEROCOLITIS HAEMORRHAGIC
     Dosage: 3 DF, 1X/DAY
     Route: 048
     Dates: start: 20190228, end: 20190502
  3. METEOSPASMYL (ALVERINE CITRATE\DIMETHICONE) [Suspect]
     Active Substance: ALVERINE CITRATE\DIMETHICONE
     Indication: ABDOMINAL PAIN
     Dosage: 3 DF, 1X/DAY
     Route: 048
     Dates: start: 20190411, end: 20190502
  4. VENLAFAXINE BLUEFISH [Suspect]
     Active Substance: VENLAFAXINE HYDROCHLORIDE
     Indication: DEPRESSION
     Dosage: 2 DF, 1X/DAY
     Route: 048
     Dates: start: 20190108, end: 20190502
  5. ALPRAZOLAM. [Suspect]
     Active Substance: ALPRAZOLAM
     Indication: DEPRESSION
     Dosage: 2 DF, 1X/DAY
     Route: 048
     Dates: start: 20190108, end: 20190502
  6. SOLUPRED [PREDNISOLONE METASULFOBENZOATE SODIUM] [Suspect]
     Active Substance: PREDNISOLONE SODIUM METAZOATE
     Indication: COLITIS
     Dosage: UNK
     Route: 048
     Dates: start: 20190228, end: 20190506

REACTIONS (4)
  - Bone marrow failure [Recovered/Resolved]
  - Off label use [Unknown]
  - Product use in unapproved indication [Unknown]
  - Lung infection [Recovering/Resolving]

NARRATIVE: CASE EVENT DATE: 20190108
